FAERS Safety Report 4875513-9 (Version None)
Quarter: 2006Q1

REPORT INFORMATION
  Report Type: 
  Country: None (occurrence: None)
  Receive Date: 20060109
  Receipt Date: 20051230
  Transmission Date: 20060701
  Serious: Yes (Other)
  Sender: FDA-Public Use
  Company Number: PHBS2005ES19190

PATIENT
  Age: 74 Year
  Sex: Female

DRUGS (5)
  1. ZOMETA [Suspect]
     Indication: MULTIPLE MYELOMA
     Dosage: UNK, QMO
     Route: 042
     Dates: start: 20030101, end: 20040101
  2. IMOVANE [Concomitant]
  3. NAPROXEN [Concomitant]
  4. ZYLORIC [Concomitant]
  5. DURAGESIC-100 [Concomitant]

REACTIONS (5)
  - BONE DISORDER [None]
  - OSTEONECROSIS [None]
  - PAIN [None]
  - TOOTH EXTRACTION [None]
  - WOUND DEBRIDEMENT [None]
